FAERS Safety Report 23808345 (Version 1)
Quarter: 2024Q2

REPORT INFORMATION
  Report Type: Spontaneous
  Country: US (occurrence: None)
  Receive Date: 20240501
  Receipt Date: 20240501
  Transmission Date: 20240716
  Serious: Yes (Hospitalization)
  Sender: FDA-Public Use
  Company Number: None

PATIENT
  Age: 73 Year
  Sex: Male
  Weight: 132 kg

DRUGS (2)
  1. LISINOPRIL [Suspect]
     Active Substance: LISINOPRIL
     Indication: Hypertension
     Dosage: FREQUENCY : DAILY;?
     Route: 048
     Dates: start: 20171205, end: 20230116
  2. LISINOPRIL [Suspect]
     Active Substance: LISINOPRIL
     Indication: Renal disorder prophylaxis

REACTIONS (1)
  - Angioedema [None]

NARRATIVE: CASE EVENT DATE: 20230115
